FAERS Safety Report 5237776-X (Version None)
Quarter: 2007Q1

REPORT INFORMATION
  Report Type: 
  Country: None (occurrence: None)
  Receive Date: 20070214
  Receipt Date: 20070205
  Transmission Date: 20070707
  Serious: Yes (Hospitalization)
  Sender: FDA-Public Use
  Company Number: MU-GLAXOSMITHKLINE-B0458135A

PATIENT
  Age: 38 Year
  Sex: Male

DRUGS (1)
  1. ZYBAN [Suspect]
     Dosage: 1TAB SEE DOSAGE TEXT
     Route: 048
     Dates: start: 20070127, end: 20070203

REACTIONS (6)
  - ANXIETY [None]
  - HYPOAESTHESIA [None]
  - IRRITABILITY [None]
  - NERVOUSNESS [None]
  - PARAESTHESIA [None]
  - PHOTOPHOBIA [None]
